FAERS Safety Report 9618977 (Version 1)
Quarter: 2013Q4

REPORT INFORMATION
  Report Type: Spontaneous
  Country: IN (occurrence: IN)
  Receive Date: 20131014
  Receipt Date: 20131014
  Transmission Date: 20140711
  Serious: Yes (Hospitalization, Other)
  Sender: FDA-Public Use
  Company Number: IN-SA-2013SA102102

PATIENT
  Age: 35 Year
  Sex: Male

DRUGS (2)
  1. PENTAZOCINE HYDROCHLORIDE [Suspect]
     Indication: DRUG ABUSE
     Dosage: FREQUENCY OF USAGE: 1-2 INJECTIONS
     Route: 051
  2. PENTAZOCINE HYDROCHLORIDE [Suspect]
     Indication: DRUG ABUSE
     Dosage: FREQUENCY OF USAGE: 4-6 INJECTIONS
     Route: 051

REACTIONS (10)
  - Injection site abscess [Recovering/Resolving]
  - Drug abuser [Unknown]
  - Skin ulcer [Recovering/Resolving]
  - Scar [Recovering/Resolving]
  - Eschar [Recovering/Resolving]
  - Scab [Recovering/Resolving]
  - Drug dependence [Unknown]
  - Asthenia [Unknown]
  - Drug withdrawal syndrome [Unknown]
  - Pain [Unknown]
